FAERS Safety Report 13485226 (Version 1)
Quarter: 2017Q2

REPORT INFORMATION
  Report Type: Spontaneous
  Country: US (occurrence: US)
  Receive Date: 20170425
  Receipt Date: 20170425
  Transmission Date: 20170830
  Serious: Yes (Other)
  Sender: FDA-Public Use
  Company Number: US-TEVA-758289ACC

PATIENT
  Sex: Female

DRUGS (1)
  1. CLONIDINE. [Suspect]
     Active Substance: CLONIDINE
     Route: 065
     Dates: start: 20150209

REACTIONS (3)
  - Ageusia [Unknown]
  - Swollen tongue [Recovered/Resolved]
  - Drug dispensing error [Unknown]
